FAERS Safety Report 7285768-1 (Version None)
Quarter: 2011Q1

REPORT INFORMATION
  Report Type: 
  Country: None (occurrence: None)
  Receive Date: 20110210
  Receipt Date: 20110128
  Transmission Date: 20110831
  Serious: Yes (Hospitalization)
  Sender: FDA-Public Use
  Company Number: PHHY2011FR07452

PATIENT

DRUGS (2)
  1. ISONIAZID [Suspect]
     Indication: PULMONARY TUBERCULOSIS
  2. PYRAZINAMIDE [Suspect]
     Indication: PULMONARY TUBERCULOSIS

REACTIONS (3)
  - ACUTE HEPATIC FAILURE [None]
  - JAUNDICE [None]
  - CELL DEATH [None]
